FAERS Safety Report 8054788-1 (Version None)
Quarter: 2012Q1

REPORT INFORMATION
  Report Type: 
  Country: None (occurrence: None)
  Receive Date: 20120112
  Receipt Date: 20111229
  Transmission Date: 20120608
  Serious: Yes (Hospitalization)
  Sender: FDA-Public Use
  Company Number: 2011NA000117

PATIENT
  Age: 69 Year
  Sex: Female
  Weight: 77 kg

DRUGS (1)
  1. DICLOFENAC SODIUM [Suspect]
     Indication: PROCEDURAL PAIN
     Dosage: IM
     Route: 030

REACTIONS (18)
  - EMBOLIA CUTIS MEDICAMENTOSA [None]
  - SKIN GRAFT [None]
  - HAEMATOMA [None]
  - SCAR [None]
  - INJECTION SITE PAIN [None]
  - ESCHAR [None]
  - SKIN NECROSIS [None]
  - SKIN HAEMORRHAGE [None]
  - DRUG HYPERSENSITIVITY [None]
  - SKIN DISCOLOURATION [None]
  - MUSCULOSKELETAL PAIN [None]
  - SKIN SWELLING [None]
  - ERYTHEMA [None]
  - LIVIDITY [None]
  - HAEMORRHAGE [None]
  - INJECTION SITE DISCOLOURATION [None]
  - RASH MACULAR [None]
  - COMPARTMENT SYNDROME [None]
